FAERS Safety Report 8356205 (Version 4)
Quarter: 2013Q3

REPORT INFORMATION
  Report Type: Spontaneous
  Country: BR (occurrence: BR)
  Receive Date: 20120126
  Receipt Date: 20130815
  Transmission Date: 20140515
  Serious: Yes (Hospitalization, Other)
  Sender: FDA-Public Use
  Company Number: BR-ROCHE-1011455

PATIENT
  Sex: Female
  Weight: 70 kg

DRUGS (3)
  1. BONVIVA [Suspect]
     Indication: OSTEOPOROSIS
     Route: 048
     Dates: start: 20111107
  2. XELODA [Suspect]
     Indication: BREAST CANCER METASTATIC
     Route: 048
     Dates: start: 20120120
  3. AROMASIN [Concomitant]
     Indication: CHEMOTHERAPY
     Route: 065

REACTIONS (10)
  - Breast cancer metastatic [Not Recovered/Not Resolved]
  - Bone disorder [Not Recovered/Not Resolved]
  - Disease progression [Not Recovered/Not Resolved]
  - Drug ineffective [Unknown]
  - Spinal pain [Recovered/Resolved]
  - Bone pain [Not Recovered/Not Resolved]
  - Malaise [Recovered/Resolved]
  - Loose tooth [Not Recovered/Not Resolved]
  - Toothache [Recovered/Resolved]
  - Speech disorder [Not Recovered/Not Resolved]
